FAERS Safety Report 8337663-4 (Version None)
Quarter: 2012Q2

REPORT INFORMATION
  Report Type: 
  Country: None (occurrence: None)
  Receive Date: 20120504
  Receipt Date: 20120504
  Transmission Date: 20120825
  Serious: Yes (Other)
  Sender: FDA-Public Use
  Company Number: None

PATIENT
  Sex: Female

DRUGS (12)
  1. LOVAZA [Concomitant]
  2. VITAMIN D [Concomitant]
  3. VITAMIN B-12 [Concomitant]
  4. PROLIA [Suspect]
     Indication: BONE DISORDER
     Dosage: |STRENGTH: 60MG/ML|
     Dates: start: 20120224, end: 20120224
  5. ZANTAC [Concomitant]
     Route: 048
  6. PLAVIX [Concomitant]
     Route: 048
  7. ZOFRAN [Concomitant]
  8. VITAMIN C [Concomitant]
  9. DIOVAN HCT [Concomitant]
     Route: 048
  10. VITAMIN B3 [Concomitant]
  11. LIPITOR [Concomitant]
     Route: 048
  12. LYRICA [Concomitant]
     Route: 048

REACTIONS (6)
  - PRURITUS [None]
  - STOMATITIS [None]
  - SKIN LESION [None]
  - VISUAL IMPAIRMENT [None]
  - MYALGIA [None]
  - SCREAMING [None]
